FAERS Safety Report 10308148 (Version 1)
Quarter: 2014Q3

REPORT INFORMATION
  Report Type: Spontaneous
  Country: CN (occurrence: CN)
  Receive Date: 20140716
  Receipt Date: 20140716
  Transmission Date: 20150326
  Serious: Yes (Death)
  Sender: FDA-Public Use
  Company Number: CN-PFIZER INC-2014196492

PATIENT
  Age: 24 Year
  Sex: Male

DRUGS (1)
  1. XALKORI [Suspect]
     Active Substance: CRIZOTINIB
     Indication: LUNG NEOPLASM MALIGNANT
     Dosage: 250 MG, 2X/DAY
     Dates: start: 2014, end: 2014

REACTIONS (4)
  - Lung neoplasm malignant [Fatal]
  - Renal failure [Fatal]
  - Disease progression [Fatal]
  - Cardiac failure [Fatal]

NARRATIVE: CASE EVENT DATE: 2014
